FAERS Safety Report 6590656-X (Version None)
Quarter: 2010Q1

REPORT INFORMATION
  Report Type: 
  Country: None (occurrence: None)
  Receive Date: 20100219
  Receipt Date: 20100217
  Transmission Date: 20100710
  Serious: Yes (Death)
  Sender: FDA-Public Use
  Company Number: A0845056A

PATIENT
  Age: 91 Year
  Sex: Female

DRUGS (4)
  1. PROMACTA [Suspect]
     Indication: NON-HODGKIN'S LYMPHOMA
     Dosage: 50MG PER DAY
     Route: 048
     Dates: start: 20090928, end: 20100125
  2. CORTICOSTEROIDS [Concomitant]
     Indication: IDIOPATHIC THROMBOCYTOPENIC PURPURA
     Dates: start: 20090908, end: 20090911
  3. IMMUNE GLOBULIN INTRAVENOUS (HUMAN) [Concomitant]
     Indication: IDIOPATHIC THROMBOCYTOPENIC PURPURA
     Dates: start: 20090908, end: 20090914
  4. RITUXIMAB [Concomitant]
     Indication: IDIOPATHIC THROMBOCYTOPENIC PURPURA
     Dates: start: 20090911

REACTIONS (1)
  - DEATH [None]
